FAERS Safety Report 9090615 (Version 2)
Quarter: 2013Q1

REPORT INFORMATION
  Report Type: Spontaneous
  Country: DE (occurrence: DE)
  Receive Date: 20130201
  Receipt Date: 20130320
  Transmission Date: 20140127
  Serious: Yes (Death)
  Sender: FDA-Public Use
  Company Number: DE-EISAI INC-E2090-02495-SPO-DE

PATIENT
  Age: 23 Year
  Sex: Male

DRUGS (3)
  1. ZONEGRAN [Suspect]
     Indication: GRAND MAL CONVULSION
     Dosage: 400 MG
     Route: 048
     Dates: start: 20120418
  2. LEVATRIRACETAM [Concomitant]
     Indication: GRAND MAL CONVULSION
     Dosage: 3000 MG, UNKNOWN
     Route: 048
     Dates: start: 20120418
  3. CLONACEPAM 2.5MG/ML [Concomitant]
     Indication: GRAND MAL CONVULSION
     Dosage: 10 GTTS AS NEEDED
     Route: 048
     Dates: start: 20120418

REACTIONS (1)
  - Sudden death [Fatal]
